FAERS Safety Report 20793756 (Version 2)
Quarter: 2022Q2

REPORT INFORMATION
  Report Type: Report from Study
  Country: US (occurrence: US)
  Receive Date: 20220506
  Receipt Date: 20220509
  Transmission Date: 20220721
  Serious: Yes (Other)
  Sender: FDA-Public Use
  Company Number: US-ABBVIE-22K-163-4381650-00

PATIENT
  Sex: Female

DRUGS (1)
  1. HUMIRA [Suspect]
     Active Substance: ADALIMUMAB
     Indication: Ankylosing spondylitis
     Route: 058

REACTIONS (6)
  - Blindness unilateral [Recovering/Resolving]
  - Eye inflammation [Recovering/Resolving]
  - Eye movement disorder [Unknown]
  - Ocular discomfort [Unknown]
  - Headache [Unknown]
  - Discomfort [Unknown]
